FAERS Safety Report 10204886 (Version 1)
Quarter: 2014Q2

REPORT INFORMATION
  Report Type: Spontaneous
  Country: US (occurrence: None)
  Receive Date: 20140527
  Receipt Date: 20140527
  Transmission Date: 20141212
  Serious: Yes (Other)
  Sender: FDA-Public Use
  Company Number: None

PATIENT
  Age: 53 Year
  Sex: Female

DRUGS (1)
  1. AVONEX [Suspect]
     Indication: MULTIPLE SCLEROSIS
     Dosage: 30MCG/0.5ML, ONCE A WEEK
     Dates: start: 20140503, end: 20140503

REACTIONS (5)
  - Injection site pain [None]
  - Injection site haemorrhage [None]
  - Injection site bruising [None]
  - Pain in extremity [None]
  - No reaction on previous exposure to drug [None]
